FAERS Safety Report 13321981 (Version 3)
Quarter: 2018Q1

REPORT INFORMATION
  Report Type: Spontaneous
  Country: US (occurrence: US)
  Receive Date: 20170309
  Receipt Date: 20180309
  Transmission Date: 20180508
  Serious: Yes (Hospitalization)
  Sender: FDA-Public Use
  Company Number: US-PFIZER INC-2017094908

PATIENT
  Age: 73 Year
  Sex: Female

DRUGS (1)
  1. XELJANZ XR [Suspect]
     Active Substance: TOFACITINIB CITRATE
     Dosage: 11 MG, UNK
     Dates: start: 201702

REACTIONS (5)
  - Tongue disorder [Unknown]
  - Stomatitis [Unknown]
  - Urinary tract infection [Unknown]
  - Noninfective gingivitis [Unknown]
  - Influenza [Unknown]

NARRATIVE: CASE EVENT DATE: 20170223
